FAERS Safety Report 4497581-9 (Version None)
Quarter: 2004Q4

REPORT INFORMATION
  Report Type: 
  Country: None (occurrence: None)
  Receive Date: 20041104
  Receipt Date: 20041019
  Transmission Date: 20050328
  Serious: Yes (Other)
  Sender: FDA-Public Use
  Company Number: 2004240003FR

PATIENT
  Age: 38 Year
  Sex: Female

DRUGS (1)
  1. CALAN [Suspect]
     Dosage: 2400 MG, ORAL
     Route: 048

REACTIONS (4)
  - BLOOD PRESSURE SYSTOLIC DECREASED [None]
  - HAEMODYNAMIC INSTABILITY [None]
  - INTENTIONAL OVERDOSE [None]
  - SUICIDE ATTEMPT [None]
